FAERS Safety Report 8090290-9 (Version None)
Quarter: 2012Q1

REPORT INFORMATION
  Report Type: 
  Country: None (occurrence: None)
  Receive Date: 20120129
  Receipt Date: 20111111
  Transmission Date: 20120608
  Serious: No
  Sender: FDA-Public Use
  Company Number: US-ABBOTT-11P-163-0873617-00

PATIENT
  Age: 53 Year
  Sex: Male

DRUGS (2)
  1. HUMALOG [Concomitant]
     Indication: PRODUCT USED FOR UNKNOWN INDICATION
     Dosage: 70/30, 25 UNITS AM + 30 UNITS PM
  2. HUMIRA [Suspect]
     Indication: PSORIASIS
     Dates: start: 20110922

REACTIONS (1)
  - PSORIASIS [None]
